FAERS Safety Report 21073068 (Version 2)
Quarter: 2023Q2

REPORT INFORMATION
  Report Type: Spontaneous
  Country: US (occurrence: US)
  Receive Date: 20220712
  Receipt Date: 20230525
  Transmission Date: 20230722
  Serious: No
  Sender: FDA-Public Use
  Company Number: US-SA-SAC20220707001481

PATIENT
  Age: 21 Year
  Sex: Male
  Weight: 65.7 kg

DRUGS (2)
  1. DUPILUMAB [Suspect]
     Active Substance: DUPILUMAB
     Indication: Dermatitis atopic
     Dosage: 300 MG, QOW
     Route: 058
     Dates: start: 20210601
  2. ALLERTEC [CETIRIZINE] [Concomitant]

REACTIONS (6)
  - Skin haemorrhage [Recovering/Resolving]
  - Weight decreased [Unknown]
  - Foreign body sensation in eyes [Not Recovered/Not Resolved]
  - Pruritus [Recovering/Resolving]
  - Ocular hyperaemia [Not Recovered/Not Resolved]
  - Insomnia [Not Recovered/Not Resolved]

NARRATIVE: CASE EVENT DATE: 20210601
